FAERS Safety Report 9219943 (Version 2)
Quarter: 2013Q2

REPORT INFORMATION
  Report Type: Spontaneous
  Country: US (occurrence: US)
  Receive Date: 20130409
  Receipt Date: 20130513
  Transmission Date: 20140414
  Serious: Yes (Life-Threatening, Hospitalization, Other)
  Sender: FDA-Public Use
  Company Number: US-ROCHE-1210294

PATIENT
  Age: 67 Year
  Sex: Female

DRUGS (6)
  1. ACTILYSE [Suspect]
     Indication: VASCULAR GRAFT OCCLUSION
     Route: 013
  2. WARFARIN [Concomitant]
  3. CLONIDINE [Concomitant]
     Indication: HYPERTENSION
  4. FLUVASTATIN [Concomitant]
     Indication: HYPERCHOLESTEROLAEMIA
  5. INSULIN [Concomitant]
     Indication: TYPE 2 DIABETES MELLITUS
  6. FUROSEMIDE [Concomitant]
     Indication: HYPERTENSION

REACTIONS (9)
  - Splenic rupture [Unknown]
  - Shock [Recovered/Resolved]
  - Intra-abdominal haemorrhage [Recovered/Resolved]
  - Pelvic haemorrhage [Recovered/Resolved]
  - Abdominal wall haematoma [Recovered/Resolved]
  - Abdominal pain [Recovered/Resolved]
  - Somnolence [Recovered/Resolved]
  - Vomiting [Recovered/Resolved]
  - Nausea [Recovered/Resolved]
